FAERS Safety Report 4626626-8 (Version None)
Quarter: 2005Q1

REPORT INFORMATION
  Report Type: 
  Country: None (occurrence: None)
  Receive Date: 20050330
  Receipt Date: 20050322
  Transmission Date: 20050727
  Serious: Yes (Hospitalization)
  Sender: FDA-Public Use
  Company Number: 2004UW24744

PATIENT
  Age: 52 Year
  Sex: Male
  Weight: 57.152 kg

DRUGS (3)
  1. PRILOSEC [Suspect]
     Indication: DYSPEPSIA
     Dosage: 10 MG BID PO
     Route: 048
     Dates: start: 20040301
  2. KLONOPIN [Concomitant]
  3. SYNTHROID [Concomitant]

REACTIONS (1)
  - HEPATIC PAIN [None]
